FAERS Safety Report 4749518-2 (Version None)
Quarter: 2005Q3

REPORT INFORMATION
  Report Type: 
  Country: None (occurrence: None)
  Receive Date: 20050819
  Receipt Date: 20050809
  Transmission Date: 20060218
  Serious: Yes (Hospitalization)
  Sender: FDA-Public Use
  Company Number: GXKR2005MX01369

PATIENT
  Age: 75 Year
  Sex: Female
  Weight: 35.5 kg

DRUGS (1)
  1. NAPROXEN [Suspect]
     Indication: OSTEOARTHRITIS
     Dosage: 500 MG

REACTIONS (13)
  - ABDOMINAL PAIN [None]
  - ANAEMIA [None]
  - ASCITES [None]
  - ASTHENIA [None]
  - BLOOD IRON DECREASED [None]
  - COLONIC STENOSIS [None]
  - DECREASED APPETITE [None]
  - DIARRHOEA [None]
  - HYPOALBUMINAEMIA [None]
  - HYPOTENSION [None]
  - OEDEMA PERIPHERAL [None]
  - TACHYCARDIA [None]
  - WEIGHT DECREASED [None]
